FAERS Safety Report 25090592 (Version 3)
Quarter: 2025Q2

REPORT INFORMATION
  Report Type: Spontaneous
  Country: US (occurrence: US)
  Receive Date: 20250318
  Receipt Date: 20250608
  Transmission Date: 20250717
  Serious: Yes (Other)
  Sender: COHERUS
  Company Number: US-COHERUS BIOSCIENCES, INC-2025-COH-US000199

PATIENT

DRUGS (5)
  1. UDENYCA [Suspect]
     Active Substance: PEGFILGRASTIM-CBQV
     Indication: Febrile neutropenia
     Route: 058
  2. UDENYCA [Suspect]
     Active Substance: PEGFILGRASTIM-CBQV
     Route: 058
     Dates: start: 20250318
  3. CARBOPLATIN [Concomitant]
     Active Substance: CARBOPLATIN
  4. PACLITAXEL [Concomitant]
     Active Substance: PACLITAXEL
  5. BEVACIZUMAB [Concomitant]
     Active Substance: BEVACIZUMAB

REACTIONS (3)
  - Neutrophil count decreased [Unknown]
  - Treatment noncompliance [Unknown]
  - Product dose omission issue [Not Recovered/Not Resolved]

NARRATIVE: CASE EVENT DATE: 20250226
